FAERS Safety Report 18096743 (Version 1)
Quarter: 2020Q3

REPORT INFORMATION
  Report Type: Spontaneous
  Country: US (occurrence: US)
  Receive Date: 20200730
  Receipt Date: 20200730
  Transmission Date: 20201103
  Serious: Yes (Hospitalization, Disabling, Other)
  Sender: FDA-Public Use
  Company Number: US-PURDUE-USA-2020-0160075

PATIENT
  Age: 66 Year
  Sex: Male

DRUGS (3)
  1. PROZAC [Concomitant]
     Active Substance: FLUOXETINE HYDROCHLORIDE
     Indication: PRODUCT USED FOR UNKNOWN INDICATION
     Dosage: UNKNOWN
     Route: 065
  2. REGLAN [Concomitant]
     Active Substance: METOCLOPRAMIDE HYDROCHLORIDE
     Indication: PRODUCT USED FOR UNKNOWN INDICATION
     Dosage: UNKNOWN
     Route: 065
  3. OXYCONTIN [Suspect]
     Active Substance: OXYCODONE HYDROCHLORIDE
     Indication: PRODUCT USED FOR UNKNOWN INDICATION
     Dosage: UNKNOWN
     Route: 048

REACTIONS (25)
  - Drug dependence [Unknown]
  - Mental impairment [Unknown]
  - Coordination abnormal [Unknown]
  - Loss of consciousness [Recovered/Resolved]
  - Myocardial infarction [Unknown]
  - Confusional state [Unknown]
  - Drug withdrawal syndrome [Unknown]
  - Encephalopathy [Unknown]
  - Fibromyalgia [Unknown]
  - Anal incontinence [Unknown]
  - Tissue injury [Unknown]
  - Acute respiratory failure [Recovered/Resolved]
  - Hypertension [Unknown]
  - Drug abuse [Unknown]
  - Pneumonia staphylococcal [Unknown]
  - Physical disability [Unknown]
  - Incontinence [Unknown]
  - Dysphagia [Unknown]
  - Hypernatraemia [Unknown]
  - Diabetes mellitus [Unknown]
  - Miosis [Unknown]
  - Agitation [Unknown]
  - Delirium [Unknown]
  - Mouth haemorrhage [Unknown]
  - Troponin increased [Unknown]

NARRATIVE: CASE EVENT DATE: 20140725
